FAERS Safety Report 9925037 (Version 2)
Quarter: 2014Q3

REPORT INFORMATION
  Report Type: Spontaneous
  Country: NL (occurrence: None)
  Receive Date: 20140221
  Receipt Date: 20140811
  Transmission Date: 20150326
  Serious: Yes (Hospitalization)
  Sender: FDA-Public Use
  Company Number: 2014NL0054

PATIENT
  Age: 40 Year
  Sex: Male

DRUGS (1)
  1. ANAKINRA [Suspect]
     Active Substance: ANAKINRA
     Indication: PYREXIA

REACTIONS (2)
  - Interstitial lung disease [None]
  - Drug effect decreased [None]
